FAERS Safety Report 18495818 (Version 1)
Quarter: 2020Q4

REPORT INFORMATION
  Report Type: Spontaneous
  Country: US (occurrence: US)
  Receive Date: 20201112
  Receipt Date: 20201112
  Transmission Date: 20210114
  Serious: Yes (Death)
  Sender: FDA-Public Use
  Company Number: None

PATIENT
  Sex: Male

DRUGS (3)
  1. TACROLIMUS. [Suspect]
     Active Substance: TACROLIMUS
     Indication: STEM CELL TRANSPLANT
     Dosage: ?          OTHER FREQUENCY:EVERY 12HRS;?
     Route: 048
     Dates: start: 20201005
  2. LOSARTAN POTASSIUM TABLET 25 MG [Concomitant]
     Dates: start: 20200820
  3. METOPROLOL SUCCINATE TABLET 25MG ER [Concomitant]
     Dates: start: 20200820

REACTIONS (1)
  - Death [None]
